FAERS Safety Report 10354676 (Version 2)
Quarter: 2014Q3

REPORT INFORMATION
  Report Type: Report from Study
  Country: BR (occurrence: BR)
  Receive Date: 20140731
  Receipt Date: 20140828
  Transmission Date: 20150326
  Serious: Yes (Other)
  Sender: FDA-Public Use
  Company Number: PHHY2014BR092657

PATIENT
  Sex: Male
  Weight: 70 kg

DRUGS (12)
  1. METFORMIN [Suspect]
     Active Substance: METFORMIN HYDROCHLORIDE
     Indication: DIABETES MELLITUS
     Dosage: 1 DF (TABLET), DAILY (METF 500 MG)
     Route: 048
  2. METFORMIN [Suspect]
     Active Substance: METFORMIN HYDROCHLORIDE
     Dosage: 1 DF (TABLET), DAILY (METF 850 MG)
     Route: 048
  3. GINSENG [Concomitant]
     Indication: FATIGUE
     Dosage: 1 DF, DAILY (500 MG)
     Route: 048
  4. GINKO BILOBA [Concomitant]
     Indication: MENTAL DISORDER
  5. SAW PALMETTO [Concomitant]
     Active Substance: SAW PALMETTO
     Indication: PROSTATIC DISORDER
     Dosage: 1 DF, DAILY (450 MG)
     Route: 048
  6. COD-LIVER OIL [Concomitant]
     Active Substance: FISH OIL
     Indication: CARDIAC DISORDER
     Dosage: 1 DF, DAILY
     Route: 048
  7. GEROVITAL [Concomitant]
     Indication: CARDIAC DISORDER
     Dosage: 1 DF, DAILY
     Route: 048
  8. GINKO BILOBA [Concomitant]
     Indication: PHYSICAL DISABILITY
     Dosage: 1 DF, DAILY (80 MG)
     Route: 048
  9. FISH OIL [Concomitant]
     Active Substance: FISH OIL
     Indication: CARDIAC DISORDER
     Dosage: 1 DF, DAILY (1000 MG)
     Route: 048
  10. ALLOPURINOL. [Concomitant]
     Active Substance: ALLOPURINOL
     Indication: BLOOD URIC ACID INCREASED
     Dosage: 1 DF, DAILY (100 MG)
     Route: 048
  11. CENTRUM [Concomitant]
     Active Substance: VITAMINS
     Indication: VITAMIN SUPPLEMENTATION
     Dosage: 1 DF, DAILY
     Route: 048
  12. GALVUS [Suspect]
     Active Substance: VILDAGLIPTIN
     Indication: DIABETES MELLITUS
     Dosage: 1 DF, DAILY (VILD 50 MG)
     Route: 048

REACTIONS (1)
  - Cataract [Recovered/Resolved]
